FAERS Safety Report 4720772-6 (Version None)
Quarter: 2005Q3

REPORT INFORMATION
  Report Type: 
  Country: None (occurrence: None)
  Receive Date: 20050721
  Receipt Date: 20030324
  Transmission Date: 20060218
  Serious: Yes (Hospitalization)
  Sender: FDA-Public Use
  Company Number: US-BRISTOL-MYERS SQUIBB COMPANY-12201661

PATIENT
  Age: 71 Year
  Sex: Male

DRUGS (24)
  1. CETUXIMAB [Suspect]
     Indication: NEOPLASM MALIGNANT
     Route: 042
     Dates: start: 20010924, end: 20010924
  2. CISPLATIN [Suspect]
     Indication: NEOPLASM MALIGNANT
     Route: 042
     Dates: start: 20010924, end: 20010924
  3. PACERONE [Concomitant]
     Indication: BRADYCARDIA
     Dates: start: 20010729, end: 20011010
  4. KYTRIL [Concomitant]
     Indication: PREMEDICATION
     Dates: start: 20010910, end: 20011001
  5. SOLU-MEDROL [Concomitant]
  6. LASIX [Concomitant]
  7. MANNITOL [Concomitant]
  8. NORMAL SALINE [Concomitant]
  9. DEXTROSE + SALINE [Concomitant]
  10. MORPHINE [Concomitant]
     Dates: start: 20010910, end: 20011001
  11. LACRI-LUBE [Concomitant]
     Dates: start: 20010830
  12. POTASSIUM CHLORIDE [Concomitant]
     Indication: PREMEDICATION
     Dates: start: 20010910, end: 20011007
  13. SALAGEN [Concomitant]
     Dates: start: 20010916
  14. NYSTATIN [Concomitant]
     Dates: start: 20010916, end: 20011001
  15. XOPENEX [Concomitant]
     Dosage: ALSO ADMINISTERED ON 01-OCT-2001: 2.5 MG.
     Dates: start: 20010924, end: 20010930
  16. PULMICORT [Concomitant]
     Dosage: ALSO ADMINISTERED ON 01-OCT-2001: 0.50 MG.
     Dates: start: 20010924, end: 20010930
  17. REFRESH [Concomitant]
     Dates: start: 20010801
  18. NEOMYCIN [Concomitant]
     Indication: OTITIS MEDIA
     Dates: start: 20010907
  19. ECOTRIN [Concomitant]
     Dates: start: 20010830
  20. PREDNISONE [Concomitant]
     Indication: FACIAL PALSY
     Dates: start: 20010830, end: 20010914
  21. ACYCLOVIR [Concomitant]
     Indication: FACIAL PALSY
     Dates: start: 20010907, end: 20010914
  22. AUGMENTIN '125' [Concomitant]
     Indication: FACIAL PALSY
     Dates: start: 20010907, end: 20010913
  23. ZOFRAN [Concomitant]
     Indication: NAUSEA
     Dates: start: 20010911, end: 20010913
  24. MAGNESIUM SULFATE [Concomitant]
     Indication: PREMEDICATION
     Dates: start: 20010910

REACTIONS (3)
  - DEHYDRATION [None]
  - OTITIS MEDIA [None]
  - PYREXIA [None]
